FAERS Safety Report 13618739 (Version 1)
Quarter: 2017Q2

REPORT INFORMATION
  Report Type: Spontaneous
  Country: US (occurrence: US)
  Receive Date: 20170606
  Receipt Date: 20170606
  Transmission Date: 20170830
  Serious: Yes (Hospitalization)
  Sender: FDA-Public Use
  Company Number: None

PATIENT
  Age: 56 Year
  Sex: Female
  Weight: 107 kg

DRUGS (20)
  1. CIMETIDINE (TAGANET) [Concomitant]
  2. LACTULOSE (CHRONOLAC) [Concomitant]
  3. HARVONI [Concomitant]
     Active Substance: LEDIPASVIR\SOFOSBUVIR
  4. RIFAXIMIN (XIFAXAN) [Concomitant]
  5. FOLIC ACID (FOLVITE) [Concomitant]
  6. SUCRALFATE (CARAFATE) [Concomitant]
  7. MAGNESIUM OXIDE (MAG-OX) [Concomitant]
  8. SEROQUEL [Concomitant]
     Active Substance: QUETIAPINE FUMARATE
  9. LIDOCAINE (LIDODERM) [Concomitant]
  10. THIAMINE (VITAMIN B-1) [Concomitant]
  11. TRAMADOL (ULTRAM) [Concomitant]
  12. LIPASE-PROTEASE-AMYLASE (CREON) [Concomitant]
  13. NADOLOL (CORGARD) [Concomitant]
  14. SPIRONOLACTONE (ALDACTONE) [Concomitant]
  15. URSODIOL (ACTIGALL) [Concomitant]
  16. LEDIPASVIR-SOFOSBUVIR 90-400MG GILEAD [Suspect]
     Active Substance: LEDIPASVIR\SOFOSBUVIR
     Route: 048
     Dates: start: 20161005, end: 20170322
  17. CHOLECALCIFEROL (VITAMIN D) [Concomitant]
  18. ESCITALOPRAM OXALATE (LEXAPRO) [Concomitant]
  19. MIRALAX [Concomitant]
     Active Substance: POLYETHYLENE GLYCOL 3350
  20. NUTRITIONAL SUPPLEMENT (ENSURE) [Concomitant]

REACTIONS (2)
  - Spinal compression fracture [None]
  - Intervertebral disc degeneration [None]

NARRATIVE: CASE EVENT DATE: 20161031
